FAERS Safety Report 7559474-X (Version None)
Quarter: 2011Q2

REPORT INFORMATION
  Report Type: 
  Country: None (occurrence: None)
  Receive Date: 20110613
  Receipt Date: 20110610
  Transmission Date: 20111010
  Serious: Yes (Other)
  Sender: FDA-Public Use
  Company Number: 1000020645

PATIENT
  Sex: Female

DRUGS (4)
  1. PROPRANOLOL [Concomitant]
  2. LEXAPRO [Suspect]
     Indication: DEPRESSION
     Dosage: 10 MG (10 MG,1 IN 1 D), ORAL
     Route: 048
     Dates: start: 20110401, end: 20110504
  3. LEXAPRO [Suspect]
     Indication: ANXIETY
     Dosage: 10 MG (10 MG,1 IN 1 D), ORAL
     Route: 048
     Dates: start: 20110401, end: 20110504
  4. CARBAMAZEPINE [Concomitant]

REACTIONS (1)
  - CONVULSION [None]
